FAERS Safety Report 7549544-4 (Version None)
Quarter: 2011Q2

REPORT INFORMATION
  Report Type: 
  Country: None (occurrence: None)
  Receive Date: 20110615
  Receipt Date: 20110526
  Transmission Date: 20111010
  Serious: Yes (Hospitalization)
  Sender: FDA-Public Use
  Company Number: A0835214A

PATIENT
  Age: 74 Year
  Sex: Male
  Weight: 78.7 kg

DRUGS (7)
  1. AVANDIA [Suspect]
     Dosage: 4MG PER DAY
     Route: 048
     Dates: start: 20000101, end: 20070101
  2. GLUCOVANCE [Concomitant]
  3. COLCHICINE [Concomitant]
  4. NORVASC [Concomitant]
  5. HYDROCHLOROTHIAZIDE [Concomitant]
  6. PRAVACHOL [Concomitant]
  7. DIOVAN [Concomitant]

REACTIONS (4)
  - CARDIAC FAILURE CONGESTIVE [None]
  - MYOCARDIAL INFARCTION [None]
  - CARDIOVASCULAR DISORDER [None]
  - CORONARY ARTERY DISEASE [None]
